FAERS Safety Report 9972738 (Version 1)
Quarter: 2014Q1

REPORT INFORMATION
  Report Type: Spontaneous
  Country: US (occurrence: None)
  Receive Date: 20140127
  Receipt Date: 20140127
  Transmission Date: 20141002
  Serious: Yes (Other)
  Sender: FDA-Public Use
  Company Number: 1298091

PATIENT
  Sex: Female

DRUGS (4)
  1. RITUXAN [Suspect]
     Indication: CHRONIC LYMPHOCYTIC LEUKAEMIA
     Dosage: (1 IN 3 M), UNKNOWN
  2. RITUXAN [Suspect]
     Indication: IMMUNE THROMBOCYTOPENIC PURPURA
     Dosage: (1 IN 3 M), UNKNOWN
  3. BENADRYL (UNITED STATES) (DIPHENHYDRAMINE HYDROCHLORIDE) [Concomitant]
  4. ACETAMINOPHEN (PARACETAMOL) [Concomitant]

REACTIONS (3)
  - Bradycardia [None]
  - Hypotension [None]
  - Hypoxia [None]
